FAERS Safety Report 9165428 (Version 2)
Quarter: 2013Q2

REPORT INFORMATION
  Report Type: Spontaneous
  Country: US (occurrence: US)
  Receive Date: 20130315
  Receipt Date: 20130405
  Transmission Date: 20140414
  Serious: Yes (Life-Threatening, Disabling, Other)
  Sender: FDA-Public Use
  Company Number: US-ABBOTT-13P-163-1062603-00

PATIENT
  Age: 87 Year
  Sex: Female
  Weight: 48.53 kg

DRUGS (13)
  1. DIVALPROEX SODIUM [Suspect]
     Indication: CONVULSION
     Route: 065
     Dates: end: 201201
  2. LAMOTRIGINE [Suspect]
     Indication: CONVULSION
     Dates: start: 201111
  3. RALOXIFENE HYDROCHLORIDE [Suspect]
     Indication: OSTEOPOROSIS
     Route: 065
  4. CLONIDINE [Concomitant]
     Indication: PRODUCT USED FOR UNKNOWN INDICATION
  5. BUSPIRONE [Concomitant]
     Indication: PRODUCT USED FOR UNKNOWN INDICATION
  6. AMITRIPTYLINE [Concomitant]
     Indication: PRODUCT USED FOR UNKNOWN INDICATION
  7. RANITIDINE HYDROCHLORIDE [Concomitant]
     Indication: PRODUCT USED FOR UNKNOWN INDICATION
  8. ASPIRIN [Concomitant]
     Indication: PRODUCT USED FOR UNKNOWN INDICATION
  9. CYANOCOBALAMIN [Concomitant]
     Indication: PRODUCT USED FOR UNKNOWN INDICATION
  10. FOLIC ACID [Concomitant]
     Indication: PRODUCT USED FOR UNKNOWN INDICATION
  11. CALCIUM SALT [Concomitant]
     Indication: PRODUCT USED FOR UNKNOWN INDICATION
  12. VITAMIN D [Concomitant]
     Indication: PRODUCT USED FOR UNKNOWN INDICATION
  13. COLECALCIFEROL [Concomitant]
     Indication: PRODUCT USED FOR UNKNOWN INDICATION

REACTIONS (24)
  - Convulsion [Unknown]
  - Pruritus [Unknown]
  - Abdominal discomfort [Unknown]
  - Decreased appetite [Unknown]
  - Convulsion [Unknown]
  - Sleep disorder [Unknown]
  - Diverticulitis [Unknown]
  - Hernia [Unknown]
  - Oxygen saturation decreased [Unknown]
  - Drug interaction [Unknown]
  - Iron deficiency [Unknown]
  - Fear of eating [Unknown]
  - Drug ineffective [Unknown]
  - Iron deficiency anaemia [Unknown]
  - Gastrointestinal stenosis [Not Recovered/Not Resolved]
  - Diverticulum intestinal [Not Recovered/Not Resolved]
  - Dry mouth [Not Recovered/Not Resolved]
  - Lip oedema [Not Recovered/Not Resolved]
  - Lip pain [Not Recovered/Not Resolved]
  - Stomatitis [Unknown]
  - Cerebral atrophy [Unknown]
  - Angiopathy [Unknown]
  - Movement disorder [Unknown]
  - Nervous system disorder [Unknown]
